FAERS Safety Report 8739256 (Version 2)
Quarter: 2012Q4

REPORT INFORMATION
  Report Type: Report from Study
  Country: CA (occurrence: CA)
  Receive Date: 20120823
  Receipt Date: 20121221
  Transmission Date: 20130627
  Serious: Yes (Other)
  Sender: FDA-Public Use
  Company Number: CA-JNJFOC-20120710687

PATIENT
  Age: 52 None
  Sex: Female
  Weight: 51.3 kg

DRUGS (8)
  1. REMICADE [Suspect]
     Indication: PSORIATIC ARTHROPATHY
     Route: 042
     Dates: start: 20111017
  2. REMICADE [Suspect]
     Indication: PSORIATIC ARTHROPATHY
     Route: 042
     Dates: start: 20111031, end: 20120716
  3. REMICADE [Suspect]
     Indication: PSORIATIC ARTHROPATHY
     Route: 042
     Dates: start: 2011, end: 2012
  4. ENBREL [Suspect]
     Indication: PRODUCT USED FOR UNKNOWN INDICATION
     Route: 065
  5. METHOTREXATE [Concomitant]
     Route: 065
  6. FOLIC ACID [Concomitant]
     Route: 065
  7. ESTRACE [Concomitant]
     Route: 065
  8. MELOXICAM [Concomitant]
     Route: 065

REACTIONS (5)
  - Respiratory failure [Recovering/Resolving]
  - Pharyngeal oedema [Unknown]
  - Chest discomfort [Unknown]
  - Fatigue [Unknown]
  - Hypersensitivity [Unknown]
